FAERS Safety Report 10027435 (Version 1)
Quarter: 2014Q1

REPORT INFORMATION
  Report Type: Spontaneous
  Country: US (occurrence: US)
  Receive Date: 20140321
  Receipt Date: 20140321
  Transmission Date: 20141002
  Serious: No
  Sender: FDA-Public Use
  Company Number: US-PFIZER INC-2014079810

PATIENT
  Age: 56 Year
  Sex: Male
  Weight: 90.7 kg

DRUGS (3)
  1. NEURONTIN [Suspect]
     Indication: AMPUTATION STUMP PAIN
     Dosage: UNK
  2. LORTAB [Concomitant]
     Indication: BACK PAIN
     Dosage: HYDROCODONE BITARTRATE (10)/ ACETAMINOPHEN (325) MG,EVERY 4 HRS
  3. FENTANYL [Concomitant]
     Indication: BACK PAIN
     Dosage: UNK, EVERY 48 HOURS

REACTIONS (1)
  - Drug ineffective [Unknown]
